FAERS Safety Report 25934801 (Version 1)
Quarter: 2025Q4

REPORT INFORMATION
  Report Type: Spontaneous
  Country: EU (occurrence: EU)
  Receive Date: 20251017
  Receipt Date: 20251017
  Transmission Date: 20260117
  Serious: Yes (Other)
  Sender: RANBAXY
  Company Number: EU-SUN PHARMACEUTICAL INDUSTRIES LTD-2025RR-531520

PATIENT
  Age: 45 Year
  Sex: Female

DRUGS (11)
  1. SERTRALINE [Suspect]
     Active Substance: SERTRALINE HYDROCHLORIDE
     Indication: Pruritus
     Dosage: UNK
     Route: 065
  2. ACYCLOVIR [Suspect]
     Active Substance: ACYCLOVIR
     Indication: Erythema multiforme
     Dosage: 400 MILLIGRAM, BID
     Route: 065
  3. GABAPENTIN [Suspect]
     Active Substance: GABAPENTIN
     Indication: Pruritus
     Dosage: UNK
     Route: 065
  4. HYDROXYCHLOROQUINE [Suspect]
     Active Substance: HYDROXYCHLOROQUINE
     Indication: Erythema multiforme
     Dosage: 400 MILLIGRAM, DAILY
     Route: 065
  5. MYCOPHENOLATE MOFETIL [Suspect]
     Active Substance: MYCOPHENOLATE MOFETIL
     Indication: Erythema multiforme
     Dosage: 750 MILLIGRAM, BID
     Route: 065
  6. METHOTREXATE [Suspect]
     Active Substance: METHOTREXATE
     Indication: Erythema multiforme
     Dosage: UNK
     Route: 061
  7. APREMILAST [Suspect]
     Active Substance: APREMILAST
     Indication: Pruritus
     Dosage: 30 MILLIGRAM, BID
     Route: 065
  8. TRETINOIN [Suspect]
     Active Substance: TRETINOIN
     Indication: Erythema multiforme
     Dosage: UNK
     Route: 061
  9. DAPSONE [Suspect]
     Active Substance: DAPSONE
     Indication: Erythema multiforme
     Dosage: UNK
     Route: 061
  10. ACITRETIN [Suspect]
     Active Substance: ACITRETIN
     Indication: Erythema multiforme
     Dosage: UNK
     Route: 061
  11. QUINACRINE [Suspect]
     Active Substance: QUINACRINE
     Indication: Erythema multiforme
     Dosage: UNK
     Route: 061

REACTIONS (4)
  - Suicidal ideation [Unknown]
  - Drug ineffective [Not Recovered/Not Resolved]
  - Therapeutic product effect incomplete [Not Recovered/Not Resolved]
  - Maculopathy [Unknown]
